FAERS Safety Report 7196152-3 (Version None)
Quarter: 2010Q4

REPORT INFORMATION
  Report Type: 
  Country: None (occurrence: None)
  Receive Date: 20101223
  Receipt Date: 20101015
  Transmission Date: 20110411
  Serious: No
  Sender: FDA-Public Use
  Company Number: US-AMGEN-USASP2010001202

PATIENT

DRUGS (5)
  1. ENBREL [Suspect]
     Indication: PRODUCT USED FOR UNKNOWN INDICATION
     Dosage: 50 MG, QWK
     Route: 058
  2. NAPROSYN [Concomitant]
  3. METHOTREXATE [Concomitant]
     Dosage: 2.5 MG, UNK
  4. SIMVASTATIN [Concomitant]
     Dosage: 10 MG, UNK
  5. FOLIC ACID [Concomitant]
     Dosage: 200 MG, UNK

REACTIONS (4)
  - INJECTION SITE ERYTHEMA [None]
  - INJECTION SITE REACTION [None]
  - INJECTION SITE URTICARIA [None]
  - INJECTION SITE WARMTH [None]
